FAERS Safety Report 9064105 (Version 1)
Quarter: 2013Q1

REPORT INFORMATION
  Report Type: Report from Study
  Country: US (occurrence: US)
  Receive Date: 20130130
  Receipt Date: 20130130
  Transmission Date: 20140127
  Serious: No
  Sender: FDA-Public Use
  Company Number: US-ABBOTT-12P-163-0930553-00

PATIENT
  Age: 56 Year
  Sex: Female

DRUGS (14)
  1. HUMIRA 40 MG/0.8 ML PEN [Suspect]
     Indication: RHEUMATOID ARTHRITIS
     Dates: start: 20120430
  2. SERTRALINE [Concomitant]
     Indication: DEPRESSION
     Dosage: 100 MG DAILY
     Route: 048
  3. SINGULAIR [Concomitant]
     Indication: PRODUCT USED FOR UNKNOWN INDICATION
     Dosage: 10 MG DAILY
     Route: 048
  4. ALBUTEROL [Concomitant]
     Indication: PRODUCT USED FOR UNKNOWN INDICATION
  5. DULERA [Concomitant]
     Indication: PRODUCT USED FOR UNKNOWN INDICATION
  6. VENTOLIN [Concomitant]
     Indication: ASTHMA
     Dosage: 2 PUFFS DAILY
  7. LIPITOR [Concomitant]
     Indication: BLOOD CHOLESTEROL INCREASED
     Dosage: 20 MG DAILY
     Route: 048
  8. VERAPAMIL [Concomitant]
     Indication: HYPERTENSION
     Dosage: 240 MG DAILY
     Route: 048
  9. PRIMIDONE [Concomitant]
     Indication: ESSENTIAL TREMOR
  10. HYDROXYCHLOROQUINE [Concomitant]
     Indication: PRODUCT USED FOR UNKNOWN INDICATION
  11. METHOTREXATE [Concomitant]
     Indication: PRODUCT USED FOR UNKNOWN INDICATION
     Dosage: 2.5 MG TAB TIMES 8 WEEKLY
  12. OXYCODONE [Concomitant]
     Indication: RHEUMATOID ARTHRITIS
     Dosage: 5/325 MG, THREE TIMES A DAY
     Route: 048
  13. XANAX [Concomitant]
     Indication: ANXIETY
     Route: 048
  14. ISONIAZID [Concomitant]
     Indication: TUBERCULOSIS
     Dosage: 300 MG DAILY
     Route: 048
     Dates: start: 201112

REACTIONS (2)
  - Injection site haemorrhage [Recovered/Resolved]
  - Injection site haemorrhage [Recovering/Resolving]
